FAERS Safety Report 14283971 (Version 1)
Quarter: 2017Q4

REPORT INFORMATION
  Report Type: Spontaneous
  Country: US (occurrence: US)
  Receive Date: 20171214
  Receipt Date: 20171214
  Transmission Date: 20180321
  Serious: Yes (Hospitalization, Other)
  Sender: FDA-Public Use
  Company Number: US-AUROBINDO-AUR-APL-2017-45322

PATIENT
  Age: 56 Year
  Sex: Female
  Weight: 58 kg

DRUGS (12)
  1. PHENOBARBITAL. [Interacting]
     Active Substance: PHENOBARBITAL
     Indication: EPILEPSY
     Dosage: 32.4 MG IN THE MORNING AND AFTERNOON WITH 64.8 MG AT BEDTIME
     Dates: end: 201510
  2. LEVETIRACETAM. [Concomitant]
     Active Substance: LEVETIRACETAM
     Indication: EPILEPSY
     Dates: start: 201510
  3. TOPIRAMATE. [Interacting]
     Active Substance: TOPIRAMATE
     Dosage: 200 MG, TWICE A DAY
     Dates: start: 201510
  4. VITAMIN D [Concomitant]
     Active Substance: CHOLECALCIFEROL
     Indication: PRODUCT USED FOR UNKNOWN INDICATION
  5. PHENOBARBITAL. [Interacting]
     Active Substance: PHENOBARBITAL
     Dosage: TID
     Dates: start: 201510, end: 201512
  6. POLYETHYLENE GLYCOL [Concomitant]
     Active Substance: POLYETHYLENE GLYCOLS
     Indication: PRODUCT USED FOR UNKNOWN INDICATION
  7. LEVOTHYROXINE. [Concomitant]
     Active Substance: LEVOTHYROXINE
     Indication: PRODUCT USED FOR UNKNOWN INDICATION
  8. CALCIUM CARBONATE. [Concomitant]
     Active Substance: CALCIUM CARBONATE
     Indication: PRODUCT USED FOR UNKNOWN INDICATION
     Dosage: TWICE A DAY
  9. MAGNESIUM [Concomitant]
     Active Substance: MAGNESIUM
     Indication: PRODUCT USED FOR UNKNOWN INDICATION
     Dosage: 1000 MG/5 ML 3 TIMES A DAY ()
  10. TOPIRAMATE. [Suspect]
     Active Substance: TOPIRAMATE
     Indication: EPILEPSY
     Dosage: 300 MG, TWICE A DAY
     Dates: start: 201412, end: 201510
  11. PHENOBARBITAL. [Interacting]
     Active Substance: PHENOBARBITAL
     Dosage: 32.4 MG, UNK
     Dates: start: 201512
  12. METHENAMINE [Concomitant]
     Active Substance: METHENAMINE
     Indication: PRODUCT USED FOR UNKNOWN INDICATION

REACTIONS (3)
  - Drug interaction [Recovered/Resolved]
  - Hypothermia [Recovered/Resolved]
  - Hyperammonaemia [Recovering/Resolving]

NARRATIVE: CASE EVENT DATE: 2015
